FAERS Safety Report 8321669-5 (Version None)
Quarter: 2012Q2

REPORT INFORMATION
  Report Type: 
  Country: None (occurrence: None)
  Receive Date: 20120430
  Receipt Date: 20120424
  Transmission Date: 20120825
  Serious: Yes (Hospitalization)
  Sender: FDA-Public Use
  Company Number: PHHY2012DE036169

PATIENT

DRUGS (1)
  1. ZOLEDRONOC ACID [Suspect]
     Dosage: 5 MG, YEARLY
     Route: 042
     Dates: start: 20120301

REACTIONS (4)
  - MUSCULAR WEAKNESS [None]
  - MYASTHENIA GRAVIS [None]
  - TREMOR [None]
  - NAUSEA [None]
